FAERS Safety Report 9720431 (Version 1)
Quarter: 2013Q4

REPORT INFORMATION
  Report Type: Report from Study
  Country: LB (occurrence: LB)
  Receive Date: 20131129
  Receipt Date: 20131129
  Transmission Date: 20140711
  Serious: Yes (Hospitalization)
  Sender: FDA-Public Use
  Company Number: LB-SA-2013SA121816

PATIENT
  Age: 61 Year
  Sex: Male
  Weight: 103 kg

DRUGS (9)
  1. LANTUS [Suspect]
     Indication: TYPE 2 DIABETES MELLITUS
     Route: 058
     Dates: start: 20130628
  2. DIAMICRON [Concomitant]
  3. LANTUS [Concomitant]
  4. ATORVASTATIN [Concomitant]
     Dosage: STRENGTH: 20
  5. LIPANTHYL [Concomitant]
     Dosage: STRENGTH: 200
  6. ASPIRIN [Concomitant]
  7. MULTIVITAMINS [Concomitant]
  8. VITAMIN C [Concomitant]
  9. VITAMIN A [Concomitant]

REACTIONS (1)
  - Wound infection [Recovering/Resolving]
